FAERS Safety Report 18818504 (Version 1)
Quarter: 2021Q1

REPORT INFORMATION
  Report Type: Spontaneous
  Country: NO (occurrence: NO)
  Receive Date: 20210202
  Receipt Date: 20210202
  Transmission Date: 20210419
  Serious: Yes (Other)
  Sender: FDA-Public Use
  Company Number: NO-SA-2021SA027905

PATIENT
  Age: 53 Year
  Sex: Female
  Weight: 49 kg

DRUGS (3)
  1. ACETYLSALISYLSYRE [Concomitant]
     Indication: THROMBOSIS
     Dosage: 1 PER DAY
     Route: 065
     Dates: start: 2018
  2. PLAVIX [Suspect]
     Active Substance: CLOPIDOGREL BISULFATE
     Indication: THROMBOSIS
     Dosage: 75 MG
     Route: 048
     Dates: start: 20201117
  3. METOPROLOL TARTRATE. [Concomitant]
     Active Substance: METOPROLOL TARTRATE
     Indication: ARRHYTHMIA
     Dosage: 1 PER DAY
     Route: 065

REACTIONS (7)
  - Hallucination [Unknown]
  - Restlessness [Unknown]
  - Pain of skin [Unknown]
  - Disorientation [Unknown]
  - Dry skin [Unknown]
  - Skin disorder [Unknown]
  - Haemorrhage subepidermal [Unknown]

NARRATIVE: CASE EVENT DATE: 20201120
